FAERS Safety Report 6198236-5 (Version None)
Quarter: 2009Q2

REPORT INFORMATION
  Report Type: 
  Country: None (occurrence: None)
  Receive Date: 20090521
  Receipt Date: 20090519
  Transmission Date: 20091009
  Serious: Yes (Life-Threatening, Hospitalization, Other)
  Sender: FDA-Public Use
  Company Number: CH-BRISTOL-MYERS SQUIBB COMPANY-14482343

PATIENT
  Age: 46 Year
  Sex: Female

DRUGS (6)
  1. REYATAZ [Suspect]
     Indication: HIV INFECTION
     Route: 048
     Dates: start: 20080801
  2. NARCAN [Interacting]
     Indication: DRUG DEPENDENCE
     Route: 048
     Dates: start: 20081227
  3. METHADONE [Interacting]
     Indication: DRUG ABUSE
     Route: 048
     Dates: end: 20081231
  4. NORVIR [Interacting]
     Indication: HIV INFECTION
     Dosage: FORMULATION: CAPS
     Route: 048
     Dates: start: 20080801
  5. FLUVOXAMINE MALEATE [Interacting]
     Route: 048
  6. TRUVADA [Concomitant]
     Indication: HIV INFECTION
     Route: 048
     Dates: start: 20080801

REACTIONS (10)
  - ACUTE PULMONARY OEDEMA [None]
  - COMA [None]
  - CORONARY ARTERY STENOSIS [None]
  - DRUG INTERACTION [None]
  - ELECTROCARDIOGRAM QT PROLONGED [None]
  - HEPATIC LESION [None]
  - HEPATOMEGALY [None]
  - SPLENOMEGALY [None]
  - STRESS CARDIOMYOPATHY [None]
  - TORSADE DE POINTES [None]
